FAERS Safety Report 17471934 (Version 4)
Quarter: 2021Q1

REPORT INFORMATION
  Report Type: Report from Study
  Country: JP (occurrence: JP)
  Receive Date: 20200228
  Receipt Date: 20210329
  Transmission Date: 20210419
  Serious: Yes (Hospitalization, Other)
  Sender: FDA-Public Use
  Company Number: JP-GLAXOSMITHKLINE-JP2020JPN033957

PATIENT
  Age: 6 Decade
  Sex: Male
  Weight: 63 kg

DRUGS (34)
  1. PREDNISOLONE. [Suspect]
     Active Substance: PREDNISOLONE
     Indication: EOSINOPHILIC GRANULOMATOSIS WITH POLYANGIITIS
     Dosage: 8 MG, 1D
     Dates: start: 20190801, end: 20190925
  2. LYRICA OD TABLETS [Concomitant]
     Indication: EOSINOPHILIC GRANULOMATOSIS WITH POLYANGIITIS
     Dosage: UNK
  3. SELTOUCH PAP [Concomitant]
     Dosage: UNK
  4. TEARBALANCE OPHTHALMIC SOLUTION [Concomitant]
  5. GOOFICE TABLET [Concomitant]
  6. PREDNISOLONE. [Suspect]
     Active Substance: PREDNISOLONE
     Dosage: 8 MG
     Dates: end: 201912
  7. HIRUDOID SOFT OINTMENT [Concomitant]
     Dosage: UNK
  8. NITROPEN [Concomitant]
     Active Substance: NITROGLYCERIN
  9. PREDNISOLONE. [Suspect]
     Active Substance: PREDNISOLONE
     Dosage: 3 MG, 1D
     Dates: start: 20191010
  10. PREDONINE [Suspect]
     Active Substance: PREDNISOLONE
     Dosage: 10 MG, 1D
     Dates: start: 20190926, end: 20191009
  11. TRAMCET COMBINATION TABLETS [Concomitant]
     Indication: EOSINOPHILIC GRANULOMATOSIS WITH POLYANGIITIS
     Dosage: UNK
  12. EDIROL CAPSULE [Concomitant]
     Dosage: UNK
  13. HARNAL D TABLETS [Concomitant]
     Dosage: UNK
  14. PREDONINE [Suspect]
     Active Substance: PREDNISOLONE
     Dosage: 5 MG, 1D
     Dates: start: 20191010, end: 20200108
  15. MEPOLIZUMAB [Suspect]
     Active Substance: MEPOLIZUMAB
     Dosage: 300 MG
     Route: 058
     Dates: start: 20191009, end: 20191009
  16. PREDNISOLONE. [Suspect]
     Active Substance: PREDNISOLONE
     Indication: PACHYMENINGITIS
     Dosage: 3 MG, 1D
     Dates: end: 20190731
  17. PREDONINE [Suspect]
     Active Substance: PREDNISOLONE
     Indication: EOSINOPHILIC GRANULOMATOSIS WITH POLYANGIITIS
     Dosage: 5 MG, 1D
     Dates: end: 20190731
  18. ALLERMIST [Suspect]
     Active Substance: FLUTICASONE FUROATE
     Indication: RHINITIS HYPERTROPHIC
     Dosage: 55 UG, 1D
     Dates: start: 20191024, end: 20200108
  19. BAKTAR COMBINATION GRANULES [Concomitant]
     Indication: INFECTION PROPHYLAXIS
     Dosage: UNK
  20. MEPOLIZUMAB [Suspect]
     Active Substance: MEPOLIZUMAB
     Indication: EOSINOPHILIC GRANULOMATOSIS WITH POLYANGIITIS
     Dosage: 300 MG
     Route: 058
     Dates: start: 20190731, end: 20190731
  21. SUMILU STICK [Concomitant]
     Active Substance: FELBINAC
  22. MEPOLIZUMAB [Suspect]
     Active Substance: MEPOLIZUMAB
     Dosage: 300 MG
     Route: 058
     Dates: start: 20191211, end: 20191211
  23. PREDNISOLONE. [Suspect]
     Active Substance: PREDNISOLONE
     Dosage: UNK
     Dates: start: 201912
  24. PREDNISOLONE. [Suspect]
     Active Substance: PREDNISOLONE
     Dosage: 3 MG, 1D
     Dates: end: 20200107
  25. CONIEL TABLETS (BENIDIPINE HYDROCHLORIDE) [Concomitant]
     Dosage: UNK
  26. MYSLEE TABLETS [Concomitant]
     Dosage: UNK
  27. MEPOLIZUMAB [Suspect]
     Active Substance: MEPOLIZUMAB
     Dosage: 300 MG
     Route: 058
     Dates: start: 20190906, end: 20190906
  28. IMURAN [Suspect]
     Active Substance: AZATHIOPRINE
     Indication: PACHYMENINGITIS
     Dosage: 50 MG, QOD
     Dates: end: 20200108
  29. IMURAN [Suspect]
     Active Substance: AZATHIOPRINE
     Indication: EOSINOPHILIC GRANULOMATOSIS WITH POLYANGIITIS
  30. NEXIUM [Concomitant]
     Active Substance: ESOMEPRAZOLE MAGNESIUM
     Indication: GASTRITIS PROPHYLAXIS
     Dosage: UNK
  31. JUVELA OINTMENT [Concomitant]
     Dosage: UNK
  32. MAALOX GRANULES FOR SUSPENSION [Concomitant]
     Indication: GASTRITIS PROPHYLAXIS
  33. HEMOPORISON OINTMENT [Concomitant]
  34. PRALIA SUBCUTANEOUS INJECTION [Concomitant]

REACTIONS (9)
  - Rhinitis hypertrophic [Recovering/Resolving]
  - Condition aggravated [Not Recovered/Not Resolved]
  - Pneumonia [Recovering/Resolving]
  - Eosinophilic granulomatosis with polyangiitis [Not Recovered/Not Resolved]
  - Product use in unapproved indication [Unknown]
  - Drug ineffective [Unknown]
  - Inappropriate schedule of product administration [Unknown]
  - Condition aggravated [Recovering/Resolving]
  - Pachymeningitis [Recovering/Resolving]

NARRATIVE: CASE EVENT DATE: 20190810
